FAERS Safety Report 4714223-5 (Version None)
Quarter: 2005Q3

REPORT INFORMATION
  Report Type: 
  Country: None (occurrence: None)
  Receive Date: 20050713
  Receipt Date: 20050713
  Transmission Date: 20060218
  Serious: Yes (Life-Threatening, Hospitalization)
  Sender: FDA-Public Use
  Company Number: None

PATIENT
  Sex: Female
  Weight: 72.5755 kg

DRUGS (10)
  1. PHOSPHO SODA 1.5 OZ [Suspect]
     Indication: COLONOSCOPY
     Dosage: 1.5 OZ TWICE ORAL
     Route: 048
     Dates: start: 20050505, end: 20050506
  2. ATENOLOL [Concomitant]
  3. PRILOSEC [Concomitant]
  4. FOSAMAX [Concomitant]
  5. ZOCOR [Concomitant]
  6. VICODIN [Concomitant]
  7. LISINOPRIL [Concomitant]
  8. NORVASC [Concomitant]
  9. ASPIRIN [Concomitant]
  10. HYDROCHLOROTHIAZIDE [Concomitant]

REACTIONS (5)
  - DIALYSIS [None]
  - HYPERPHOSPHATAEMIA [None]
  - PYREXIA [None]
  - RENAL FAILURE [None]
  - URINARY SEDIMENT PRESENT [None]
